FAERS Safety Report 9454274 (Version 2)
Quarter: 2013Q3

REPORT INFORMATION
  Report Type: Spontaneous
  Country: US (occurrence: US)
  Receive Date: 20130812
  Receipt Date: 20130926
  Transmission Date: 20140515
  Serious: Yes (Death, Other)
  Sender: FDA-Public Use
  Company Number: US-CELGENEUS-163-21880-13080701

PATIENT
  Age: 66 Year
  Sex: Male

DRUGS (1)
  1. REVLIMID [Suspect]
     Indication: PROSTATE CANCER
     Dosage: 5 MILLIGRAM
     Route: 048
     Dates: start: 201304

REACTIONS (2)
  - Post procedural complication [Fatal]
  - Gastrointestinal disorder [Unknown]
